FAERS Safety Report 15757819 (Version 2)
Quarter: 2019Q3

REPORT INFORMATION
  Report Type: Other
  Country: DE (occurrence: DE)
  Receive Date: 20181225
  Receipt Date: 20190919
  Transmission Date: 20191004
  Serious: Yes (Other)
  Sender: FDA-Public Use
  Company Number: DE-CELLTRION INC.-2018DE024773

PATIENT

DRUGS (44)
  1. TRASTUZUMAB (UNKNOWN) [Suspect]
     Active Substance: TRASTUZUMAB
     Indication: HER-2 POSITIVE BREAST CANCER
     Dosage: 504 MG, EVERY  3 WEEKS
     Route: 042
     Dates: start: 20180202
  2. TRASTUZUMAB (UNKNOWN) [Suspect]
     Active Substance: TRASTUZUMAB
     Dosage: 504 MG, EVERY  3 WEEKS
     Route: 042
     Dates: start: 20180202
  3. TRASTUZUMAB (UNKNOWN) [Suspect]
     Active Substance: TRASTUZUMAB
     Dosage: 366 MG, EVERY 3 WEEKS
     Route: 042
     Dates: start: 20180223
  4. TRASTUZUMAB (UNKNOWN) [Suspect]
     Active Substance: TRASTUZUMAB
     Dosage: 366 MG, EVERY 3 WEEKS
     Route: 042
     Dates: start: 20180223
  5. TRASTUZUMAB (UNKNOWN) [Suspect]
     Active Substance: TRASTUZUMAB
     Dosage: 366 MG, EVERY 3 WEEKS
     Route: 042
     Dates: start: 20180223
  6. TRASTUZUMAB (UNKNOWN) [Suspect]
     Active Substance: TRASTUZUMAB
     Dosage: 378 MG, EVERY 3 WEEKS
     Route: 042
  7. DOCETAXEL. [Suspect]
     Active Substance: DOCETAXEL
     Dosage: 122.51 MG EVERY 3 WEEKS
     Route: 042
     Dates: start: 20180223
  8. DOCETAXEL. [Suspect]
     Active Substance: DOCETAXEL
     Dosage: 122.51 MG EVERY 3 WEEKS
     Route: 042
     Dates: start: 20180223
  9. PERTUZUMAB. [Suspect]
     Active Substance: PERTUZUMAB
     Dosage: 420 MG, EVERY 3 WEEKS
     Route: 042
     Dates: start: 20180223
  10. TRASTUZUMAB (UNKNOWN) [Suspect]
     Active Substance: TRASTUZUMAB
     Dosage: 366 MG, EVERY 3 WEEKS
     Route: 042
     Dates: start: 20180223
  11. TRASTUZUMAB (UNKNOWN) [Suspect]
     Active Substance: TRASTUZUMAB
     Dosage: 372 MG, EVERY 3 WEEKS
     Route: 042
  12. TRASTUZUMAB (UNKNOWN) [Suspect]
     Active Substance: TRASTUZUMAB
     Dosage: 372 MG, EVERY 3 WEEKS
     Route: 042
  13. DOCETAXEL. [Suspect]
     Active Substance: DOCETAXEL
     Dosage: 124.4 MG, EVERY 3 WEEKS
     Route: 042
     Dates: start: 20180202
  14. DOCETAXEL. [Suspect]
     Active Substance: DOCETAXEL
     Dosage: 124.2 MG, EVERY 3 WEEKS
     Route: 042
  15. DOCETAXEL. [Suspect]
     Active Substance: DOCETAXEL
     Dosage: 124.2 MG, EVERY 3 WEEKS
     Route: 042
  16. PERTUZUMAB. [Suspect]
     Active Substance: PERTUZUMAB
     Dosage: 840 MG, EVERY 3 WEEKS
     Route: 042
     Dates: start: 20180202
  17. TRASTUZUMAB (UNKNOWN) [Suspect]
     Active Substance: TRASTUZUMAB
     Dosage: 504 MG, EVERY  3 WEEKS
     Route: 042
     Dates: start: 20180202
  18. DOCETAXEL. [Suspect]
     Active Substance: DOCETAXEL
     Dosage: 124.4 MG, EVERY 3 WEEKS
     Route: 042
     Dates: start: 20180202
  19. DOCETAXEL. [Suspect]
     Active Substance: DOCETAXEL
     Dosage: 123.36 MG, EVERY 3 WEEKS
     Route: 042
  20. DOCETAXEL. [Suspect]
     Active Substance: DOCETAXEL
     Dosage: 122.51 MG EVERY 3 WEEKS
     Route: 042
     Dates: start: 20180223
  21. PERTUZUMAB. [Suspect]
     Active Substance: PERTUZUMAB
     Indication: HER-2 POSITIVE BREAST CANCER
     Dosage: 840 MG, EVERY 3 WEEKS
     Route: 042
     Dates: start: 20180202
  22. PERTUZUMAB. [Suspect]
     Active Substance: PERTUZUMAB
     Dosage: 420 MG, EVERY 3 WEEKS
     Route: 042
     Dates: start: 20180223
  23. TRASTUZUMAB (UNKNOWN) [Suspect]
     Active Substance: TRASTUZUMAB
     Dosage: 504 MG, EVERY  3 WEEKS
     Route: 042
     Dates: start: 20180202
  24. DOCETAXEL. [Suspect]
     Active Substance: DOCETAXEL
     Dosage: 123.36 MG, EVERY 3 WEEKS
     Route: 042
  25. DOCETAXEL. [Suspect]
     Active Substance: DOCETAXEL
     Dosage: 124.2 MG, EVERY 3 WEEKS
     Route: 042
  26. PERTUZUMAB. [Suspect]
     Active Substance: PERTUZUMAB
     Dosage: 840 MG, EVERY 3 WEEKS
     Route: 042
     Dates: start: 20180202
  27. TRASTUZUMAB (UNKNOWN) [Suspect]
     Active Substance: TRASTUZUMAB
     Dosage: 504 MG, EVERY  3 WEEKS
     Route: 042
     Dates: start: 20180202
  28. TRASTUZUMAB (UNKNOWN) [Suspect]
     Active Substance: TRASTUZUMAB
     Dosage: 372 MG, EVERY 3 WEEKS
     Route: 042
  29. DOCETAXEL. [Suspect]
     Active Substance: DOCETAXEL
     Dosage: 123.36 MG, EVERY 3 WEEKS
     Route: 042
  30. DOCETAXEL. [Suspect]
     Active Substance: DOCETAXEL
     Dosage: 122.51 MG EVERY 3 WEEKS
     Route: 042
     Dates: start: 20180223
  31. TRASTUZUMAB (UNKNOWN) [Suspect]
     Active Substance: TRASTUZUMAB
     Dosage: 372 MG, EVERY 3 WEEKS
     Route: 042
  32. TRASTUZUMAB (UNKNOWN) [Suspect]
     Active Substance: TRASTUZUMAB
     Dosage: 372 MG, EVERY 3 WEEKS
     Route: 042
  33. TRASTUZUMAB (UNKNOWN) [Suspect]
     Active Substance: TRASTUZUMAB
     Dosage: 378 MG, EVERY 3 WEEKS
     Route: 042
  34. TRASTUZUMAB (UNKNOWN) [Suspect]
     Active Substance: TRASTUZUMAB
     Dosage: 378 MG, EVERY 3 WEEKS
     Route: 042
  35. TRASTUZUMAB (UNKNOWN) [Suspect]
     Active Substance: TRASTUZUMAB
     Dosage: 378 MG, EVERY 3 WEEKS
     Route: 042
  36. DOCETAXEL. [Suspect]
     Active Substance: DOCETAXEL
     Dosage: 123.36 MG, EVERY 3 WEEKS
     Route: 042
  37. DOCETAXEL. [Suspect]
     Active Substance: DOCETAXEL
     Dosage: 124.2 MG, EVERY 3 WEEKS
     Route: 042
  38. PERTUZUMAB. [Suspect]
     Active Substance: PERTUZUMAB
     Dosage: 420 MG, EVERY 3 WEEKS
     Route: 042
     Dates: start: 20180223
  39. TRASTUZUMAB (UNKNOWN) [Suspect]
     Active Substance: TRASTUZUMAB
     Dosage: 366 MG, EVERY 3 WEEKS
     Route: 042
     Dates: start: 20180223
  40. TRASTUZUMAB (UNKNOWN) [Suspect]
     Active Substance: TRASTUZUMAB
     Dosage: 378 MG, EVERY 3 WEEKS
     Route: 042
  41. DOCETAXEL. [Suspect]
     Active Substance: DOCETAXEL
     Indication: HER-2 POSITIVE BREAST CANCER
     Dosage: 124.4 MG, EVERY 3 WEEKS
     Route: 042
     Dates: start: 20180202
  42. DOCETAXEL. [Suspect]
     Active Substance: DOCETAXEL
     Dosage: 124.4 MG, EVERY 3 WEEKS
     Route: 042
     Dates: start: 20180202
  43. PERTUZUMAB. [Suspect]
     Active Substance: PERTUZUMAB
     Dosage: 840 MG, EVERY 3 WEEKS
     Route: 042
     Dates: start: 20180202
  44. PERTUZUMAB. [Suspect]
     Active Substance: PERTUZUMAB
     Dosage: 420 MG, EVERY 3 WEEKS
     Route: 042
     Dates: start: 20180223

REACTIONS (12)
  - Paraesthesia [Not Recovered/Not Resolved]
  - Leukopenia [Recovered/Resolved]
  - Neutropenia [Recovered/Resolved]
  - Anaemia [Recovered/Resolved]
  - Dizziness [Not Recovered/Not Resolved]
  - Stomatitis [Recovered/Resolved]
  - Fatigue [Not Recovered/Not Resolved]
  - Dermatitis acneiform [Recovered/Resolved]
  - Dry skin [Recovered/Resolved]
  - Diarrhoea [Recovered/Resolved]
  - Alopecia [Recovered/Resolved]
  - Anaemia [Recovered/Resolved]

NARRATIVE: CASE EVENT DATE: 20180209
